FAERS Safety Report 18221591 (Version 1)
Quarter: 2020Q3

REPORT INFORMATION
  Report Type: Spontaneous
  Country: US (occurrence: US)
  Receive Date: 20200831
  Receipt Date: 20200831
  Transmission Date: 20201103
  Serious: Yes (Disabling)
  Sender: FDA-Public Use
  Company Number: None

PATIENT
  Age: 38 Year
  Sex: Female
  Weight: 137.7 kg

DRUGS (21)
  1. TOPAMAX [Concomitant]
     Active Substance: TOPIRAMATE
  2. NO DRUG NAME [Concomitant]
  3. GABAPENTIN. [Concomitant]
     Active Substance: GABAPENTIN
  4. VITAMIN B [Concomitant]
     Active Substance: VITAMIN B
  5. VITAMIN C [Concomitant]
     Active Substance: ASCORBIC ACID
  6. VITAMIN D [Concomitant]
     Active Substance: VITAMIN D NOS
  7. MULTIVITAMIN [Concomitant]
     Active Substance: VITAMINS
  8. TOPROL XL [Concomitant]
     Active Substance: METOPROLOL SUCCINATE
  9. MIRBETRIX [Concomitant]
  10. ABILIFY MAINTAINA [Concomitant]
  11. LITHIUM CARBONATE. [Suspect]
     Active Substance: LITHIUM CARBONATE
     Indication: SUICIDAL IDEATION
     Dosage: ?          QUANTITY:2 DF DOSAGE FORM;?
     Route: 048
  12. WHEELCHAIR [Concomitant]
     Active Substance: DEVICE
  13. LANTUS [Concomitant]
     Active Substance: INSULIN GLARGINE
  14. CLARITIN [Concomitant]
     Active Substance: LORATADINE
  15. MINIDRESS [Concomitant]
  16. HUMALOG [Concomitant]
     Active Substance: INSULIN LISPRO
  17. IMDUR [Concomitant]
     Active Substance: ISOSORBIDE MONONITRATE
  18. LACTASE [Concomitant]
     Active Substance: LACTASE
  19. LAMICTAL [Concomitant]
     Active Substance: LAMOTRIGINE
  20. DULERA [Concomitant]
     Active Substance: FORMOTEROL FUMARATE DIHYDRATE\MOMETASONE FUROATE
  21. PROTONIX [Concomitant]
     Active Substance: PANTOPRAZOLE SODIUM

REACTIONS (2)
  - Chronic kidney disease [None]
  - Toxicity to various agents [None]

NARRATIVE: CASE EVENT DATE: 20200715
